FAERS Safety Report 7358961-7 (Version None)
Quarter: 2011Q1

REPORT INFORMATION
  Report Type: 
  Country: None (occurrence: None)
  Receive Date: 20110317
  Receipt Date: 20110309
  Transmission Date: 20110831
  Serious: Yes (Hospitalization)
  Sender: FDA-Public Use
  Company Number: GB-ELI_LILLY_AND_COMPANY-GB201103002797

PATIENT
  Sex: Male

DRUGS (12)
  1. CALCICHEW [Concomitant]
     Indication: PROPHYLAXIS
  2. PEMETREXED [Suspect]
     Indication: NON-SMALL CELL LUNG CANCER STAGE III
     Dosage: 950 MG, EVERY 3 WEEKS
     Route: 042
     Dates: start: 20110207
  3. THIAMINE [Concomitant]
     Indication: RETINOPATHY
  4. VITAMIN B-12 [Concomitant]
     Indication: PROPHYLAXIS
     Dates: start: 20110119
  5. DEXAMETHASONE [Concomitant]
     Indication: PROPHYLAXIS
     Dosage: UNK, UNK
  6. OMEPRAZOLE [Concomitant]
     Indication: PULMONARY EMBOLISM
     Dates: start: 20110127
  7. FOLIC ACID [Concomitant]
     Indication: PROPHYLAXIS
     Dates: start: 20110119
  8. CLEXANE [Concomitant]
     Indication: PULMONARY EMBOLISM
  9. VITAMIN B COMPLEX CAP [Concomitant]
     Indication: RETINOPATHY
  10. CISPLATIN [Suspect]
     Indication: NON-SMALL CELL LUNG CANCER STAGE III
     Dosage: 145 MG, EVERY 3 WEEKS
     Route: 042
     Dates: start: 20110207
  11. RADIATION [Suspect]
     Indication: NON-SMALL CELL LUNG CANCER STAGE III
     Dosage: 2 GY, DAILY (1/D)
     Dates: start: 20110207
  12. PREDNISOLONE [Concomitant]
     Indication: RETINOPATHY

REACTIONS (2)
  - DYSPNOEA [None]
  - COUGH [None]
